FAERS Safety Report 4894862-1 (Version None)
Quarter: 2006Q1

REPORT INFORMATION
  Report Type: 
  Country: None (occurrence: None)
  Receive Date: 20060124
  Receipt Date: 20060111
  Transmission Date: 20060701
  Serious: Yes (Hospitalization)
  Sender: FDA-Public Use
  Company Number: 2006-CZ-00330

PATIENT
  Age: 13 Year
  Sex: Female

DRUGS (1)
  1. PREDNISOLONE TAB [Suspect]
     Indication: ANAEMIA HAEMOLYTIC AUTOIMMUNE
     Dosage: 4.5 MG/KG BODY WEIGHT/DAY,

REACTIONS (8)
  - ABNORMAL BEHAVIOUR [None]
  - CONVULSION [None]
  - CUSHINGOID [None]
  - ERYTHEMA [None]
  - EXOPHTHALMOS [None]
  - HYPOTONIA [None]
  - LYMPHADENOPATHY [None]
  - MENINGITIS CRYPTOCOCCAL [None]
